FAERS Safety Report 8319273-8 (Version None)
Quarter: 2012Q2

REPORT INFORMATION
  Report Type: 
  Country: None (occurrence: None)
  Receive Date: 20120427
  Receipt Date: 20120424
  Transmission Date: 20120825
  Serious: Yes (Other)
  Sender: FDA-Public Use
  Company Number: US-PFIZER INC-2012090699

PATIENT
  Sex: Female
  Weight: 63.492 kg

DRUGS (2)
  1. METHIMAZOLE [Concomitant]
     Indication: HYPERTHYROIDISM
     Dosage: 10 MG, 1X/DAY
  2. EFFEXOR XR [Suspect]
     Indication: HOT FLUSH
     Dosage: 37.5 MG, 1X/DAY
     Route: 048
     Dates: start: 20120404, end: 20120407

REACTIONS (4)
  - INSOMNIA [None]
  - ASPHYXIA [None]
  - NAUSEA [None]
  - DIZZINESS [None]
